FAERS Safety Report 17694617 (Version 1)
Quarter: 2020Q2

REPORT INFORMATION
  Report Type: Spontaneous
  Country: TH (occurrence: TH)
  Receive Date: 20200422
  Receipt Date: 20200422
  Transmission Date: 20200714
  Serious: Yes (Other)
  Sender: FDA-Public Use
  Company Number: TH-JNJFOC-20200423522

PATIENT
  Age: 50 Year
  Sex: Male

DRUGS (3)
  1. DARUNAVIR [Suspect]
     Active Substance: DARUNAVIR
     Indication: HIV INFECTION
     Route: 048
  2. AMPHOTERICIN B. [Suspect]
     Active Substance: AMPHOTERICIN B
     Indication: ANTIFUNGAL PROPHYLAXIS
     Route: 042
  3. TENOFOVIR DISOPROXIL [Suspect]
     Active Substance: TENOFOVIR DISOPROXIL
     Indication: HIV INFECTION
     Route: 065

REACTIONS (2)
  - Renal impairment [Not Recovered/Not Resolved]
  - Oedema [Not Recovered/Not Resolved]
